FAERS Safety Report 7522751-2 (Version None)
Quarter: 2011Q2

REPORT INFORMATION
  Report Type: 
  Country: None (occurrence: None)
  Receive Date: 20110603
  Receipt Date: 20110525
  Transmission Date: 20111010
  Serious: Yes (Life-Threatening, Hospitalization, Other)
  Sender: FDA-Public Use
  Company Number: US-ACTELION-A-NJ2011-48737

PATIENT

DRUGS (17)
  1. CALCIUM CHANNEL BLOCKERS [Concomitant]
  2. ESTRACE [Concomitant]
  3. TRACLEER [Suspect]
     Indication: PULMONARY ARTERIAL HYPERTENSION
     Dosage: 125 MG, BID
     Route: 048
     Dates: start: 20040101
  4. MORPHINE [Suspect]
  5. VITAMIN D [Concomitant]
  6. FUROSEMIDE [Concomitant]
  7. PROCHLORPERAZINE TAB [Concomitant]
  8. BLACK COHOSH [Concomitant]
  9. LIDODERM [Concomitant]
  10. REVATIO [Concomitant]
  11. VITAMIN B COMPLEX CAP [Concomitant]
  12. TYVASO [Concomitant]
  13. COUMADIN [Concomitant]
  14. DIGOXIN [Concomitant]
  15. REVLIMID [Concomitant]
  16. QVAR 40 [Concomitant]
  17. TRACLEER [Suspect]
     Dosage: UNK
     Route: 048
     Dates: start: 20040409

REACTIONS (7)
  - ASTHENIA [None]
  - PULMONARY OEDEMA [None]
  - ARTHRALGIA [None]
  - PANCYTOPENIA [None]
  - HYPOTENSION [None]
  - ASPIRATION JOINT [None]
  - HYPERHIDROSIS [None]
